FAERS Safety Report 6254468-9 (Version None)
Quarter: 2009Q3

REPORT INFORMATION
  Report Type: 
  Country: None (occurrence: None)
  Receive Date: 20090702
  Receipt Date: 20090629
  Transmission Date: 20100115
  Serious: Yes (Other)
  Sender: FDA-Public Use
  Company Number: DE-AMGEN-UK352157

PATIENT
  Sex: Female
  Weight: 80 kg

DRUGS (3)
  1. NPLATE [Suspect]
     Indication: IDIOPATHIC THROMBOCYTOPENIC PURPURA
     Route: 058
     Dates: start: 20090605
  2. IMMUNE GLOBULIN INTRAVENOUS (HUMAN) [Suspect]
     Route: 042
     Dates: start: 20090612
  3. KALIUM [Concomitant]
     Route: 048

REACTIONS (4)
  - EMBOLISM [None]
  - HAEMORRHAGE [None]
  - ISCHAEMIA [None]
  - NO THERAPEUTIC RESPONSE [None]
